FAERS Safety Report 4586665-2 (Version None)
Quarter: 2005Q1

REPORT INFORMATION
  Report Type: 
  Country: None (occurrence: None)
  Receive Date: 20050218
  Receipt Date: 20041101
  Transmission Date: 20050727
  Serious: No
  Sender: FDA-Public Use
  Company Number: US-BRISTOL-MYERS SQUIBB COMPANY-12752457

PATIENT
  Sex: Male

DRUGS (5)
  1. TAXOL [Suspect]
     Route: 042
     Dates: start: 20041101, end: 20041101
  2. DECADRON [Concomitant]
     Indication: PREMEDICATION
  3. BENADRYL [Concomitant]
     Indication: PREMEDICATION
  4. PEPCID [Concomitant]
     Indication: PREMEDICATION
  5. ANZEMET [Concomitant]
     Indication: PREMEDICATION

REACTIONS (1)
  - EXTRAVASATION [None]
